FAERS Safety Report 25548612 (Version 4)
Quarter: 2025Q4

REPORT INFORMATION
  Report Type: Spontaneous
  Country: CA (occurrence: CA)
  Receive Date: 20250714
  Receipt Date: 20251219
  Transmission Date: 20260117
  Serious: Yes (Hospitalization, Other)
  Sender: PFIZER
  Company Number: CA-PFIZER INC-202500061097

PATIENT
  Age: 49 Year
  Sex: Female
  Weight: 68 kg

DRUGS (4)
  1. IXIFI [Suspect]
     Active Substance: INFLIXIMAB-QBTX
     Indication: Takayasu^s arteritis
     Dosage: 250 MG, EVERY 8 WEEK
     Route: 042
     Dates: start: 20250506
  2. IXIFI [Suspect]
     Active Substance: INFLIXIMAB-QBTX
     Indication: Crohn^s disease
     Dosage: 250 MG, AFTER 9 WEEKS
     Route: 042
     Dates: start: 20250707
  3. IXIFI [Suspect]
     Active Substance: INFLIXIMAB-QBTX
     Indication: Uveitis
     Dosage: 250 MG, EVERY 8 WEEKS
     Route: 042
     Dates: start: 20250829
  4. IXIFI [Suspect]
     Active Substance: INFLIXIMAB-QBTX
     Dosage: 250 MG, EVERY 8 WEEKS
     Route: 042
     Dates: start: 20251023

REACTIONS (3)
  - Benign breast neoplasm [Recovering/Resolving]
  - Inappropriate schedule of product administration [Unknown]
  - Off label use [Unknown]

NARRATIVE: CASE EVENT DATE: 20250701
